FAERS Safety Report 8538945 (Version 7)
Quarter: 2014Q1

REPORT INFORMATION
  Report Type: Spontaneous
  Country: DK (occurrence: DK)
  Receive Date: 20120501
  Receipt Date: 20140124
  Transmission Date: 20141002
  Serious: Yes (Disabling, Other)
  Sender: FDA-Public Use
  Company Number: DK-PFIZER INC-2012105569

PATIENT
  Age: 12 Year
  Sex: Female
  Weight: 38 kg

DRUGS (5)
  1. ZOLOFT [Suspect]
     Indication: OBSESSIVE-COMPULSIVE DISORDER
     Dosage: 100 MG, 1X/DAY
     Dates: start: 20111018
  2. ZOLOFT [Suspect]
     Indication: DEPRESSION
  3. CIPRAMIL [Concomitant]
     Indication: OBSESSIVE-COMPULSIVE DISORDER
     Dosage: UNK
     Dates: start: 20120502, end: 20120510
  4. CIPRAMIL [Concomitant]
     Indication: DEPRESSION
  5. MELATONIN [Concomitant]
     Indication: SLEEP DISORDER
     Dosage: 3-6 MG DAILY DOSE IN THE EVENING
     Dates: start: 20111204

REACTIONS (2)
  - Growth retardation [Not Recovered/Not Resolved]
  - Growth hormone deficiency [Not Recovered/Not Resolved]
